FAERS Safety Report 25204695 (Version 2)
Quarter: 2025Q2

REPORT INFORMATION
  Report Type: Spontaneous
  Country: US (occurrence: US)
  Receive Date: 20250416
  Receipt Date: 20250417
  Transmission Date: 20250716
  Serious: Yes (Death)
  Sender: ROCHE
  Company Number: US-ROCHE-10000256477

PATIENT
  Sex: Male
  Weight: 63 kg

DRUGS (6)
  1. ACTEMRA ACTPEN [Suspect]
     Active Substance: TOCILIZUMAB
     Indication: Cytokine release syndrome
     Dosage: INJECT 0.9 ML UNDER THE SKIN EVERY 14 DAYS
     Route: 058
     Dates: start: 20241015
  2. CELEBREX [Concomitant]
     Active Substance: CELECOXIB
  3. EVEROLIMUS [Concomitant]
     Active Substance: EVEROLIMUS
  4. LENVIMA [Concomitant]
     Active Substance: LENVATINIB
  5. OPDIVO [Concomitant]
     Active Substance: NIVOLUMAB
  6. THALOMID [Concomitant]
     Active Substance: THALIDOMIDE

REACTIONS (2)
  - Off label use [Unknown]
  - Hepatocellular carcinoma [Fatal]
